FAERS Safety Report 9717906 (Version 2)
Quarter: 2014Q2

REPORT INFORMATION
  Report Type: Spontaneous
  Country: US (occurrence: US)
  Receive Date: 20131125
  Receipt Date: 20140515
  Transmission Date: 20141212
  Serious: No
  Sender: FDA-Public Use
  Company Number: US-VIVUS-2013V1000326

PATIENT
  Sex: Female

DRUGS (2)
  1. QSYMIA [Suspect]
     Indication: PRODUCT USED FOR UNKNOWN INDICATION
     Route: 048
     Dates: end: 2013
  2. FOLIC ACID [Concomitant]
     Indication: PREGNANCY
     Route: 048

REACTIONS (1)
  - Pregnancy [Not Recovered/Not Resolved]
